FAERS Safety Report 25816717 (Version 1)
Quarter: 2025Q3

REPORT INFORMATION
  Report Type: Spontaneous
  Country: US (occurrence: US)
  Receive Date: 20250918
  Receipt Date: 20250918
  Transmission Date: 20251021
  Serious: Yes (Hospitalization)
  Sender: GLENMARK
  Company Number: US-MLMSERVICE-20250904-PI631502-00196-1

PATIENT
  Age: 27 Year
  Sex: Female

DRUGS (2)
  1. ZONISAMIDE [Suspect]
     Active Substance: ZONISAMIDE
     Indication: Seizure
     Route: 065
  2. LEVETIRACETAM [Suspect]
     Active Substance: LEVETIRACETAM
     Indication: Seizure
     Route: 065

REACTIONS (3)
  - Verbal abuse [Unknown]
  - Irritability [Unknown]
  - Drug intolerance [Unknown]
